FAERS Safety Report 12905642 (Version 1)
Quarter: 2016Q4

REPORT INFORMATION
  Report Type: Spontaneous
  Country: US (occurrence: US)
  Receive Date: 20161103
  Receipt Date: 20161103
  Transmission Date: 20170207
  Serious: Yes (Other)
  Sender: FDA-Public Use
  Company Number: US-ROCHE-1849908

PATIENT
  Age: 45 Year
  Sex: Female

DRUGS (1)
  1. ESBRIET [Suspect]
     Active Substance: PIRFENIDONE
     Indication: PRODUCT USED FOR UNKNOWN INDICATION
     Dosage: 2 PILLS FOR 2 MONTHS
     Route: 065

REACTIONS (5)
  - Diarrhoea [Unknown]
  - Gastritis [Unknown]
  - Weight decreased [Unknown]
  - Tachycardia [Unknown]
  - Hypotension [Unknown]
